FAERS Safety Report 17560931 (Version 2)
Quarter: 2020Q1

REPORT INFORMATION
  Report Type: Spontaneous
  Country: DE (occurrence: DE)
  Receive Date: 20200319
  Receipt Date: 20200324
  Transmission Date: 20200409
  Serious: Yes (Disabling, Congenital Anomaly, Other)
  Sender: FDA-Public Use
  Company Number: DE-PFIZER INC-2020114825

PATIENT

DRUGS (1)
  1. CYTOTEC [Suspect]
     Active Substance: MISOPROSTOL
     Indication: LABOUR INDUCTION
     Route: 064
     Dates: start: 20131116

REACTIONS (10)
  - Cerebral palsy [Not Recovered/Not Resolved]
  - Hypermetropia [Not Recovered/Not Resolved]
  - Neonatal seizure [Not Recovered/Not Resolved]
  - Microcephaly [Not Recovered/Not Resolved]
  - Brain injury [Not Recovered/Not Resolved]
  - Foetal exposure during pregnancy [Unknown]
  - Quadriparesis [Not Recovered/Not Resolved]
  - Disabled relative [Not Recovered/Not Resolved]
  - Muscle spasticity [Not Recovered/Not Resolved]
  - Dystonia [Not Recovered/Not Resolved]

NARRATIVE: CASE EVENT DATE: 20131116
